FAERS Safety Report 16311556 (Version 9)
Quarter: 2020Q1

REPORT INFORMATION
  Report Type: Report from Study
  Country: IT (occurrence: IT)
  Receive Date: 20190514
  Receipt Date: 20200304
  Transmission Date: 20200409
  Serious: Yes (Other)
  Sender: FDA-Public Use
  Company Number: IT-SHIRE-IT201915024

PATIENT

DRUGS (13)
  1. TEDUGLUTIDE [Suspect]
     Active Substance: TEDUGLUTIDE
     Dosage: 0.05 MILLIGRAM/KILOGRAM, 1X/DAY:QD
     Route: 058
     Dates: start: 20190109
  2. REMIFEMIN [Concomitant]
     Active Substance: BLACK COHOSH
     Indication: SUPPLEMENTATION THERAPY
  3. CERNEVIT [Concomitant]
     Active Substance: VITAMINS
     Indication: SUPPLEMENTATION THERAPY
  4. TOPSTER [Concomitant]
     Indication: GASTROINTESTINAL INFLAMMATION
  5. ADDAMEL N [Concomitant]
     Active Substance: CHROMIC CHLORIDE\CUPROUS CHLORIDE\FERRIC CHLORIDE\MANGANESE CHLORIDE\POTASSIUM IODIDE\SODIUM FLUORIDE\SODIUM MOLYBDATE DIHYDRATE\SODIUM SELENITE\ZINC CHLORIDE
     Indication: SUPPLEMENTATION THERAPY
  6. TEDUGLUTIDE [Suspect]
     Active Substance: TEDUGLUTIDE
     Dosage: 0.05 MILLIGRAM/KILOGRAM, 1X/DAY:QD
     Route: 058
     Dates: start: 20190109
  7. SUPRADIN [Concomitant]
     Indication: SUPPLEMENTATION THERAPY
  8. LOPERAMIDE [Concomitant]
     Active Substance: LOPERAMIDE
     Indication: DIARRHOEA
  9. OLEVIA [Concomitant]
     Active Substance: OMEGA-3-ACID ETHYL ESTERS
     Indication: HYPERTRIGLYCERIDAEMIA
  10. TEDUGLUTIDE [Suspect]
     Active Substance: TEDUGLUTIDE
     Indication: SHORT-BOWEL SYNDROME
     Dosage: 0.05 MILLIGRAM/KILOGRAM, 1X/DAY:QD
     Route: 058
     Dates: start: 20190109
  11. TEDUGLUTIDE [Suspect]
     Active Substance: TEDUGLUTIDE
     Dosage: 0.05 MILLIGRAM/KILOGRAM, 1X/DAY:QD
     Route: 058
     Dates: start: 20190110
  12. ARIXTRA [Concomitant]
     Active Substance: FONDAPARINUX SODIUM
     Indication: CENTRAL VENOUS CATHETERISATION
  13. TIROSINT [Concomitant]
     Active Substance: LEVOTHYROXINE SODIUM
     Indication: PRODUCT USED FOR UNKNOWN INDICATION
     Dosage: UNK

REACTIONS (10)
  - Fistula [Not Recovered/Not Resolved]
  - Faecal volume increased [Recovered/Resolved]
  - Abdominal wall haematoma [Not Recovered/Not Resolved]
  - Pyrexia [Recovered/Resolved]
  - Influenza [Recovered/Resolved]
  - Vomiting [Recovered/Resolved]
  - Nausea [Recovered/Resolved]
  - Gastric pH decreased [Recovered/Resolved]
  - Rectal haemorrhage [Recovered/Resolved]
  - Oral disorder [Not Recovered/Not Resolved]

NARRATIVE: CASE EVENT DATE: 201902
